FAERS Safety Report 14518989 (Version 1)
Quarter: 2018Q1

REPORT INFORMATION
  Report Type: Spontaneous
  Country: SE (occurrence: SE)
  Receive Date: 20180212
  Receipt Date: 20180212
  Transmission Date: 20180509
  Serious: Yes (Hospitalization)
  Sender: FDA-Public Use
  Company Number: SE-PFIZER INC-2018060078

PATIENT
  Age: 84 Year
  Sex: Male

DRUGS (6)
  1. IMOVANE [Suspect]
     Active Substance: ZOPICLONE
     Dosage: 1 DF, DAILY
     Dates: end: 201711
  2. MIRTAZAPINE. [Suspect]
     Active Substance: MIRTAZAPINE
     Dosage: 15 MG, DAILY
     Dates: end: 201711
  3. GABAPENTIN. [Suspect]
     Active Substance: GABAPENTIN
     Dosage: 200 MG, DAILY
     Dates: end: 201711
  4. INDERAL [Suspect]
     Active Substance: PROPRANOLOL HYDROCHLORIDE
     Dosage: 30 MG, DAILY
     Dates: end: 201711
  5. SIFROL [Suspect]
     Active Substance: PRAMIPEXOLE
     Dosage: 18 MG, UNK
  6. CITALOPRAM [Suspect]
     Active Substance: CITALOPRAM HYDROBROMIDE
     Dosage: 10 MG, DAILY
     Dates: end: 201711

REACTIONS (1)
  - Hallucination, visual [Recovered/Resolved]

NARRATIVE: CASE EVENT DATE: 20171106
